FAERS Safety Report 9466650 (Version 1)
Quarter: 2013Q3

REPORT INFORMATION
  Report Type: Spontaneous
  Country: US (occurrence: US)
  Receive Date: 20130820
  Receipt Date: 20130820
  Transmission Date: 20140515
  Serious: Yes (Other)
  Sender: FDA-Public Use
  Company Number: US-BAYER-2013-100196

PATIENT
  Age: 81 Year
  Sex: Female
  Weight: 64.5 kg

DRUGS (3)
  1. XARELTO [Suspect]
     Indication: CEREBROVASCULAR ACCIDENT PROPHYLAXIS
     Dosage: 20 MG, QD
     Route: 048
     Dates: start: 20130719, end: 20130724
  2. XARELTO [Interacting]
     Indication: ATRIAL FIBRILLATION
     Route: 048
     Dates: start: 20130801
  3. ACETYLSALICYLIC ACID({=100 MG) [Interacting]
     Indication: HYPERTENSION
     Dosage: 81 MG, UNK
     Route: 065

REACTIONS (2)
  - Urinary bladder haemorrhage [Unknown]
  - Haematuria [Recovered/Resolved]
